FAERS Safety Report 23496740 (Version 2)
Quarter: 2024Q4

REPORT INFORMATION
  Report Type: Spontaneous
  Country: US (occurrence: US)
  Receive Date: 20240207
  Receipt Date: 20241018
  Transmission Date: 20250115
  Serious: No
  Sender: ROCHE
  Company Number: US-ROCHE-3475968

PATIENT
  Age: 83 Year
  Sex: Female
  Weight: 57.61 kg

DRUGS (2)
  1. XOLAIR [Suspect]
     Active Substance: OMALIZUMAB
     Indication: Asthma
     Route: 058
     Dates: start: 201903
  2. XOLAIR [Suspect]
     Active Substance: OMALIZUMAB

REACTIONS (5)
  - Syringe issue [Unknown]
  - Accidental exposure to product [Unknown]
  - Accidental underdose [Unknown]
  - No adverse event [Unknown]
  - Needle issue [Unknown]
